FAERS Safety Report 14868151 (Version 1)
Quarter: 2018Q2

REPORT INFORMATION
  Report Type: Other
  Country: JP (occurrence: JP)
  Receive Date: 20180509
  Receipt Date: 20180509
  Transmission Date: 20180711
  Serious: Yes (Life-Threatening)
  Sender: FDA-Public Use
  Company Number: JP-DEXPHARM-20180316

PATIENT
  Age: 78 Year
  Sex: Male

DRUGS (8)
  1. NICARDIPINE [Concomitant]
     Active Substance: NICARDIPINE
  2. MEROPENEM. [Suspect]
     Active Substance: MEROPENEM
  3. LEVOFLOXACIN. [Suspect]
     Active Substance: LEVOFLOXACIN
     Indication: ANTIBIOTIC PROPHYLAXIS
  4. LEVOFLOXACIN INJECTION [Suspect]
     Active Substance: LEVOFLOXACIN
  5. SIVELESTAT [Concomitant]
     Active Substance: SIVELESTAT
  6. TAZOBACTAM/PIPERACILLIN [Concomitant]
     Active Substance: PIPERACILLIN SODIUM\TAZOBACTAM SODIUM
  7. DICLOFENAC [Suspect]
     Active Substance: DICLOFENAC
  8. CEFCAPENE PIVOXIL [Concomitant]
     Active Substance: CEFCAPENE PIVOXIL

REACTIONS (1)
  - Traumatic lung injury [Recovered/Resolved]
